FAERS Safety Report 5827046-0 (Version None)
Quarter: 2008Q3

REPORT INFORMATION
  Report Type: 
  Country: None (occurrence: None)
  Receive Date: 20080729
  Receipt Date: 20080729
  Transmission Date: 20090109
  Serious: Yes (Hospitalization)
  Sender: FDA-Public Use
  Company Number: None

PATIENT
  Age: 54 Year
  Sex: Male
  Weight: 127.5 kg

DRUGS (2)
  1. DARUNAVIR [Suspect]
     Indication: HIV INFECTION
     Dosage: 300 MG BID PO
     Route: 048
     Dates: start: 20080318, end: 20080618
  2. RITONAVIR [Suspect]
     Indication: HIV INFECTION
     Dosage: 100 MG BID PO
     Route: 048
     Dates: start: 20080318, end: 20080618

REACTIONS (2)
  - CHOLESTASIS [None]
  - HEPATITIS C [None]
